FAERS Safety Report 5010528-1 (Version None)
Quarter: 2006Q2

REPORT INFORMATION
  Report Type: 
  Country: None (occurrence: None)
  Receive Date: 20060523
  Receipt Date: 20060510
  Transmission Date: 20061013
  Serious: Yes (Hospitalization, Other)
  Sender: FDA-Public Use
  Company Number: 2005161273

PATIENT
  Age: 39 Year
  Sex: Female
  Weight: 47.6277 kg

DRUGS (5)
  1. CELEBREX [Suspect]
     Indication: PAIN
  2. BEXTRA [Suspect]
     Indication: CHEST PAIN
     Dosage: 20 MG TWO OR THREE TIMES DAILY (20 MG, 1 D)
     Dates: start: 20040601, end: 20040701
  3. BEXTRA [Suspect]
     Indication: CORONARY ARTERY OCCLUSION
     Dosage: 20 MG TWO OR THREE TIMES DAILY (20 MG, 1 D)
     Dates: start: 20040601, end: 20040701
  4. BEXTRA [Suspect]
     Indication: PAIN
     Dosage: 20 MG TWO OR THREE TIMES DAILY (20 MG, 1 D)
     Dates: start: 20040601, end: 20040701
  5. VIOXX [Suspect]
     Indication: ILL-DEFINED DISORDER

REACTIONS (9)
  - ASTHMA [None]
  - ATRIOVENTRICULAR BLOCK FIRST DEGREE [None]
  - CARDIOVASCULAR DISORDER [None]
  - CHEST PAIN [None]
  - DEPRESSION [None]
  - ELECTROCARDIOGRAM ABNORMAL [None]
  - LEFT VENTRICULAR END-DIASTOLIC PRESSURE INCREASED [None]
  - PULMONARY HYPERTENSION [None]
  - THROMBOSIS [None]
